FAERS Safety Report 6644585-3 (Version None)
Quarter: 2010Q1

REPORT INFORMATION
  Report Type: 
  Country: None (occurrence: None)
  Receive Date: 20100318
  Receipt Date: 20100318
  Transmission Date: 20100710
  Serious: No
  Sender: FDA-Public Use
  Company Number: None

PATIENT
  Sex: Female
  Weight: 64.4 kg

DRUGS (4)
  1. METHOTREXATE [Suspect]
     Dosage: 60 MG
  2. VINCRISTINE SULFATE [Suspect]
     Dosage: 8 MG
  3. CYTARABINE [Suspect]
     Dosage: 70 MG
  4. DAUORUBICIN [Concomitant]
     Dosage: 176 MG

REACTIONS (3)
  - CHEST PAIN [None]
  - HEADACHE [None]
  - REFUSAL OF TREATMENT BY PATIENT [None]
